FAERS Safety Report 12139337 (Version 1)
Quarter: 2016Q1

REPORT INFORMATION
  Report Type: Spontaneous
  Country: US (occurrence: US)
  Receive Date: 20160303
  Receipt Date: 20160303
  Transmission Date: 20160526
  Serious: No
  Sender: FDA-Public Use
  Company Number: US-HOSPIRA-2668001

PATIENT
  Age: 68 Year
  Sex: Female
  Weight: 75 kg

DRUGS (3)
  1. KETOROLAC [Suspect]
     Active Substance: KETOROLAC\KETOROLAC TROMETHAMINE
     Indication: CYSTITIS INTERSTITIAL
     Route: 030
     Dates: start: 201411, end: 201412
  2. NORCO [Concomitant]
     Active Substance: ACETAMINOPHEN\HYDROCODONE BITARTRATE
     Indication: CYSTITIS INTERSTITIAL
     Dosage: 101325 (4 TABS)
     Route: 048
  3. HORMONES [Concomitant]
     Active Substance: UNSPECIFIED INGREDIENT
     Indication: HYSTERECTOMY
     Dosage: NOT REPORTED, NOT REPORTED
     Route: 048

REACTIONS (3)
  - Product packaging issue [Unknown]
  - Product label issue [Unknown]
  - Therapy cessation [Unknown]

NARRATIVE: CASE EVENT DATE: 201412
